FAERS Safety Report 8356988-X (Version None)
Quarter: 2012Q2

REPORT INFORMATION
  Report Type: 
  Country: None (occurrence: None)
  Receive Date: 20120514
  Receipt Date: 20120507
  Transmission Date: 20120825
  Serious: Yes (Hospitalization, Other)
  Sender: FDA-Public Use
  Company Number: US-SANOFI-AVENTIS-2012SA029410

PATIENT
  Age: 46 Year
  Sex: Female
  Weight: 109 kg

DRUGS (4)
  1. PLAQUENIL [Suspect]
     Route: 048
     Dates: start: 20120206
  2. PLAQUENIL [Suspect]
     Route: 048
     Dates: start: 20120229
  3. SUNITINIB MALATE [Suspect]
     Route: 048
     Dates: start: 20120206
  4. SUNITINIB MALATE [Suspect]
     Route: 048
     Dates: start: 20120226

REACTIONS (4)
  - SKIN ULCER [None]
  - SKIN INFECTION [None]
  - COLONIC FISTULA [None]
  - FATIGUE [None]
